FAERS Safety Report 10597547 (Version 3)
Quarter: 2015Q4

REPORT INFORMATION
  Report Type: Report from Study
  Country: NL (occurrence: NL)
  Receive Date: 20141121
  Receipt Date: 20151218
  Transmission Date: 20160304
  Serious: Yes (Other)
  Sender: FDA-Public Use
  Company Number: NL-AMGEN-NLDSL2012086757

PATIENT
  Age: 84 Year
  Sex: Male

DRUGS (1)
  1. ARANESP [Suspect]
     Active Substance: DARBEPOETIN ALFA
     Indication: PRODUCT USED FOR UNKNOWN INDICATION
     Dosage: 500 MUG/ML (1 ML), Q3WK
     Route: 058
     Dates: start: 20091206

REACTIONS (15)
  - Fatigue [Unknown]
  - Influenza like illness [Unknown]
  - Hypoaesthesia [Unknown]
  - Skin discolouration [Unknown]
  - Bone pain [Unknown]
  - Cataract [Unknown]
  - Somnolence [Unknown]
  - Gout [Unknown]
  - Balance disorder [Unknown]
  - Haemoglobin decreased [Unknown]
  - Purpura [Unknown]
  - Pain in extremity [Unknown]
  - Gait disturbance [Unknown]
  - Malaise [Unknown]
  - Arthralgia [Unknown]

NARRATIVE: CASE EVENT DATE: 20150815
